FAERS Safety Report 8791530 (Version 1)
Quarter: 2012Q4

REPORT INFORMATION
  Report Type: Spontaneous
  Country: US (occurrence: None)
  Receive Date: 20120914
  Receipt Date: 20120914
  Transmission Date: 20130627
  Serious: Yes (Life-Threatening, Hospitalization)
  Sender: FDA-Public Use
  Company Number: None

PATIENT
  Age: 52 Year
  Sex: Male
  Weight: 120.2 kg

DRUGS (2)
  1. OXYCODONE [Suspect]
     Indication: SPINAL DISORDER
     Route: 048
     Dates: start: 20120810, end: 20120910
  2. ROXICODONE [Suspect]

REACTIONS (1)
  - Product quality issue [None]
